FAERS Safety Report 25213962 (Version 1)
Quarter: 2025Q2

REPORT INFORMATION
  Report Type: Spontaneous
  Country: US (occurrence: None)
  Receive Date: 20250417
  Receipt Date: 20250417
  Transmission Date: 20250716
  Serious: Yes (Life-Threatening)
  Sender: FDA-CTU
  Company Number: None

PATIENT
  Age: 39 Year
  Sex: Female
  Weight: 78.24 kg

DRUGS (10)
  1. UNAPPROVED DRUG COSMETIC PRODUCTS [Suspect]
     Active Substance: UNAPPROVED DRUG COSMETIC PRODUCTS
     Indication: Product used for unknown indication
     Dosage: OTHER QUANTITY : QUARTER SIZE AMOUNT?FREQUENCY : DAILY?OTHER ROUTE : ON THE SKIN?
     Route: 050
     Dates: start: 20241225, end: 20250124
  2. levothyroxizine [Concomitant]
  3. HYDROXYZINE [Concomitant]
     Active Substance: HYDROXYZINE HYDROCHLORIDE
  4. DEPAKOTE [Concomitant]
     Active Substance: DIVALPROEX SODIUM
  5. LYRICA [Concomitant]
     Active Substance: PREGABALIN
  6. CELEBREX [Concomitant]
     Active Substance: CELECOXIB
  7. SEROQUEL [Concomitant]
     Active Substance: QUETIAPINE FUMARATE
  8. VITAMIN E [Concomitant]
     Active Substance: .ALPHA.-TOCOPHEROL
  9. prenatals [Concomitant]
  10. CALCIUM [Concomitant]
     Active Substance: CALCIUM

REACTIONS (1)
  - Rash [None]

NARRATIVE: CASE EVENT DATE: 20250123
